FAERS Safety Report 5401771-8 (Version None)
Quarter: 2007Q3

REPORT INFORMATION
  Report Type: 
  Country: None (occurrence: None)
  Receive Date: 20070731
  Receipt Date: 20070720
  Transmission Date: 20080115
  Serious: Yes (Hospitalization)
  Sender: FDA-Public Use
  Company Number: JP-AMGEN-US236167

PATIENT
  Sex: Female

DRUGS (7)
  1. ENBREL [Suspect]
     Indication: RHEUMATOID ARTHRITIS
     Route: 058
     Dates: start: 20050621, end: 20050629
  2. ENBREL [Suspect]
     Route: 058
     Dates: start: 20050804, end: 20060823
  3. ENBREL [Suspect]
     Route: 058
  4. INSULIN [Concomitant]
  5. RISEDRONATE SODIUM [Concomitant]
  6. PREDNISOLONE [Concomitant]
  7. LOXONIN [Concomitant]

REACTIONS (1)
  - DISSEMINATED TUBERCULOSIS [None]
